FAERS Safety Report 17565010 (Version 1)
Quarter: 2020Q1

REPORT INFORMATION
  Report Type: Spontaneous
  Country: US (occurrence: US)
  Receive Date: 20200320
  Receipt Date: 20200320
  Transmission Date: 20200409
  Serious: No
  Sender: FDA-Public Use
  Company Number: US-SA-2020SA070261

PATIENT
  Age: 83 Year
  Sex: Male

DRUGS (1)
  1. MULTAQ [Suspect]
     Active Substance: DRONEDARONE
     Dosage: UNK
     Route: 065

REACTIONS (4)
  - Nausea [Unknown]
  - Vomiting [Unknown]
  - Dysgeusia [Unknown]
  - Depressed mood [Unknown]
